FAERS Safety Report 20077773 (Version 1)
Quarter: 2021Q4

REPORT INFORMATION
  Report Type: Spontaneous
  Country: CN (occurrence: CN)
  Receive Date: 20211116
  Receipt Date: 20211116
  Transmission Date: 20220303
  Serious: Yes (Hospitalization)
  Sender: FDA-Public Use
  Company Number: CN-BoehringerIngelheim-2021-BI-138035

PATIENT
  Age: 73 Year
  Sex: Male
  Weight: 73 kg

DRUGS (1)
  1. SPIRIVA [Suspect]
     Active Substance: TIOTROPIUM BROMIDE MONOHYDRATE
     Indication: Drug therapy
     Route: 055
     Dates: start: 20211104, end: 20211109

REACTIONS (3)
  - Dysuria [Recovering/Resolving]
  - Pollakiuria [Recovering/Resolving]
  - Nocturia [Recovering/Resolving]

NARRATIVE: CASE EVENT DATE: 20211109
